FAERS Safety Report 23791017 (Version 1)
Quarter: 2024Q2

REPORT INFORMATION
  Report Type: Spontaneous
  Country: JP (occurrence: JP)
  Receive Date: 20240427
  Receipt Date: 20240427
  Transmission Date: 20240716
  Serious: Yes (Hospitalization)
  Sender: FDA-Public Use
  Company Number: JP-PRINSTON PHARMACEUTICAL INC.-2024PRN00179

PATIENT
  Age: 6 Decade
  Sex: Female

DRUGS (14)
  1. OLMESARTAN MEDOXOMIL [Suspect]
     Active Substance: OLMESARTAN MEDOXOMIL
     Dosage: 5 MG, 1X/DAY
  2. OLMESARTAN MEDOXOMIL [Suspect]
     Active Substance: OLMESARTAN MEDOXOMIL
     Dosage: 550 MG
  3. TELMISARTAN [Suspect]
     Active Substance: TELMISARTAN
     Dosage: 40 MG, 1X/DAY
  4. TELMISARTAN [Suspect]
     Active Substance: TELMISARTAN
     Dosage: 1520 MG
  5. VILDAGLIPTIN [Suspect]
     Active Substance: VILDAGLIPTIN
     Dosage: 100 MG, 1X/DAY
  6. VILDAGLIPTIN [Suspect]
     Active Substance: VILDAGLIPTIN
     Dosage: 7000 MG
  7. NIFEDIPINE [Suspect]
     Active Substance: NIFEDIPINE
     Dosage: 30 MG, 1X/DAY
  8. NIFEDIPINE [Suspect]
     Active Substance: NIFEDIPINE
     Dosage: 2160 MG
  9. AZELNIDIPINE [Suspect]
     Active Substance: AZELNIDIPINE
     Dosage: 8 MG, 1X/DAY
  10. AZELNIDIPINE [Suspect]
     Active Substance: AZELNIDIPINE
     Dosage: 440 MG
  11. AMLODIPINE [Suspect]
     Active Substance: AMLODIPINE BESYLATE
     Dosage: 5 MG, 1X/DAY
  12. AMLODIPINE [Suspect]
     Active Substance: AMLODIPINE BESYLATE
     Dosage: 190 MG
  13. ESAXERENONE [Suspect]
     Active Substance: ESAXERENONE
     Dosage: 2.5 MG, 1X/DAY
  14. ESAXERENONE [Suspect]
     Active Substance: ESAXERENONE
     Dosage: 160 MG

REACTIONS (6)
  - Overdose [Recovered/Resolved]
  - Angioedema [Recovered/Resolved]
  - Compartment syndrome [Recovering/Resolving]
  - Hypotension [Recovered/Resolved]
  - Acute kidney injury [Recovered/Resolved]
  - Altered state of consciousness [Recovered/Resolved]
